FAERS Safety Report 4657004-3 (Version None)
Quarter: 2005Q2

REPORT INFORMATION
  Report Type: 
  Country: None (occurrence: None)
  Receive Date: 20050506
  Receipt Date: 20050422
  Transmission Date: 20051028
  Serious: Yes (Hospitalization)
  Sender: FDA-Public Use
  Company Number: L05-USA-01563-05

PATIENT
  Age: 73 Year
  Sex: Female

DRUGS (6)
  1. DILTIAZEM [Suspect]
     Dosage: 180 MG QD
  2. CLONIDINE [Suspect]
     Dosage: 0.2 MG BID
  3. METOPROLOL [Suspect]
     Dosage: 50 MG QD
  4. LISINOPRIL [Suspect]
     Dosage: 20 MG BID
  5. HYDROCHLOROTHIAZIDE [Suspect]
     Dosage: 12.5 MG BID
  6. FELODIPINE [Suspect]
     Dosage: 5 MG QD

REACTIONS (7)
  - ASTHENIA [None]
  - BLOOD PRESSURE INCREASED [None]
  - DIZZINESS [None]
  - DYSPNOEA EXERTIONAL [None]
  - FATIGUE [None]
  - NODAL RHYTHM [None]
  - SINUS BRADYCARDIA [None]
